FAERS Safety Report 23995289 (Version 1)
Quarter: 2024Q2

REPORT INFORMATION
  Report Type: Report from Study
  Country: US (occurrence: US)
  Receive Date: 20240620
  Receipt Date: 20240620
  Transmission Date: 20240715
  Serious: Yes (Hospitalization)
  Sender: FDA-Public Use
  Company Number: US-ABBVIE-5784650

PATIENT
  Sex: Female
  Weight: 79 kg

DRUGS (2)
  1. HUMIRA [Suspect]
     Active Substance: ADALIMUMAB
     Indication: Rheumatoid arthritis
     Dosage: STRENGTH HUMIRA 40 MG
     Route: 058
     Dates: start: 2022, end: 20240502
  2. HUMIRA [Suspect]
     Active Substance: ADALIMUMAB
     Route: 058

REACTIONS (8)
  - Fall [Recovered/Resolved]
  - Back pain [Not Recovered/Not Resolved]
  - Latent tuberculosis [Unknown]
  - Spinal stenosis [Not Recovered/Not Resolved]
  - Confusional state [Recovered/Resolved]
  - Fall [Recovered/Resolved]
  - White blood cell count increased [Not Recovered/Not Resolved]
  - Disorientation [Recovered/Resolved]

NARRATIVE: CASE EVENT DATE: 20220101
